FAERS Safety Report 20859871 (Version 2)
Quarter: 2022Q2

REPORT INFORMATION
  Report Type: Other
  Country: JP (occurrence: JP)
  Receive Date: 20220523
  Receipt Date: 20220526
  Transmission Date: 20220721
  Serious: Yes (Other)
  Sender: FDA-Public Use
  Company Number: JP-CHUGAI-2022018215

PATIENT
  Weight: 1.479 kg

DRUGS (10)
  1. ACTEMRA [Suspect]
     Active Substance: TOCILIZUMAB
     Indication: Product used for unknown indication
     Dosage: 600 MILLIGRAM
     Route: 064
  2. REMDESIVIR [Concomitant]
     Active Substance: REMDESIVIR
     Indication: COVID-19 pneumonia
     Dosage: 200MG/DAY
     Route: 064
  3. REMDESIVIR [Concomitant]
     Active Substance: REMDESIVIR
     Dosage: 100MG/DAY
     Route: 065
  4. PREDONINE [Concomitant]
     Active Substance: PREDNISOLONE
     Indication: COVID-19 pneumonia
     Dosage: 40MG/DAY
     Route: 064
  5. FENTANYL CITRATE [Concomitant]
     Active Substance: FENTANYL CITRATE
     Indication: Analgesic therapy
     Dosage: UNK
     Route: 064
  6. FENTANYL CITRATE [Concomitant]
     Active Substance: FENTANYL CITRATE
     Indication: Sedation
  7. PROPOFOL [Concomitant]
     Active Substance: PROPOFOL
     Indication: Analgesic therapy
     Dosage: UNK
     Route: 064
  8. PROPOFOL [Concomitant]
     Active Substance: PROPOFOL
     Indication: Sedation
  9. MIDAZOLAM [Concomitant]
     Active Substance: MIDAZOLAM
     Indication: Analgesic therapy
     Dosage: UNK
     Route: 064
  10. MIDAZOLAM [Concomitant]
     Active Substance: MIDAZOLAM
     Indication: Sedation

REACTIONS (2)
  - Low birth weight baby [Recovered/Resolved]
  - Foetal exposure during pregnancy [Unknown]
